FAERS Safety Report 11216963 (Version 1)
Quarter: 2015Q2

REPORT INFORMATION
  Report Type: Spontaneous
  Country: US (occurrence: None)
  Receive Date: 20150623
  Receipt Date: 20150623
  Transmission Date: 20150821
  Serious: Yes (Other)
  Sender: FDA-Public Use
  Company Number: None

PATIENT
  Age: 51 Year
  Sex: Female
  Weight: 73.03 kg

DRUGS (6)
  1. FISH OIL [Concomitant]
     Active Substance: FISH OIL
  2. VITAMIN D [Concomitant]
     Active Substance: CHOLECALCIFEROL
  3. XARELTO [Suspect]
     Active Substance: RIVAROXABAN
     Indication: DEEP VEIN THROMBOSIS
     Route: 048
  4. CURCUMIN [Concomitant]
     Active Substance: CURCUMIN
  5. XARELTO [Concomitant]
     Active Substance: RIVAROXABAN
  6. COQ 10 [Concomitant]
     Active Substance: UBIDECARENONE

REACTIONS (2)
  - Cardiac flutter [None]
  - Palpitations [None]

NARRATIVE: CASE EVENT DATE: 20150401
